FAERS Safety Report 25162475 (Version 1)
Quarter: 2025Q2

REPORT INFORMATION
  Report Type: Spontaneous
  Country: US (occurrence: US)
  Receive Date: 20250404
  Receipt Date: 20250404
  Transmission Date: 20250717
  Serious: Yes (Other)
  Sender: IMPRIMIS NJOF, LLC
  Company Number: US-Imprimis NJOF, LLC-2174295

PATIENT

DRUGS (1)
  1. DEXMOXIKETOR PF [Suspect]
     Active Substance: DEXAMETHASONE SODIUM PHOSPHATE\KETOROLAC TROMETHAMINE\MOXIFLOXACIN HYDROCHLORIDE MONOHYDRATE

REACTIONS (1)
  - Toxic anterior segment syndrome [Recovering/Resolving]
